FAERS Safety Report 15928508 (Version 1)
Quarter: 2019Q1

REPORT INFORMATION
  Report Type: Spontaneous
  Country: AR (occurrence: AR)
  Receive Date: 20190206
  Receipt Date: 20190206
  Transmission Date: 20190417
  Serious: Yes (Other)
  Sender: FDA-Public Use
  Company Number: PHHY2019AR025915

PATIENT
  Sex: Female

DRUGS (1)
  1. ACLASTA [Suspect]
     Active Substance: ZOLEDRONIC ACID
     Indication: OSTEOPOROSIS
     Dosage: UNK
     Route: 065
     Dates: start: 20180607

REACTIONS (9)
  - Neck pain [Unknown]
  - Osteoarthritis [Unknown]
  - Pain in extremity [Unknown]
  - Musculoskeletal stiffness [Unknown]
  - Polyarthritis [Unknown]
  - Gait disturbance [Unknown]
  - Spinal pain [Unknown]
  - Musculoskeletal pain [Unknown]
  - Arthralgia [Unknown]
